FAERS Safety Report 24441314 (Version 2)
Quarter: 2024Q4

REPORT INFORMATION
  Report Type: Spontaneous
  Country: CL (occurrence: CL)
  Receive Date: 20241016
  Receipt Date: 20241017
  Transmission Date: 20250115
  Serious: No
  Sender: ROCHE
  Company Number: CL-ROCHE-3475281

PATIENT
  Age: 12 Year
  Weight: 62.0 kg

DRUGS (1)
  1. HEMLIBRA [Suspect]
     Active Substance: EMICIZUMAB-KXWH
     Indication: Product used for unknown indication
     Dosage: 2,6 MG/KG
     Route: 058

REACTIONS (2)
  - Mucosal haemorrhage [Unknown]
  - Underdose [Unknown]
